FAERS Safety Report 20390912 (Version 1)
Quarter: 2022Q1

REPORT INFORMATION
  Report Type: Spontaneous
  Country: US (occurrence: US)
  Receive Date: 20220128
  Receipt Date: 20220128
  Transmission Date: 20220423
  Serious: Yes (Hospitalization)
  Sender: FDA-Public Use
  Company Number: US-PERRIGO-22US000844

PATIENT
  Age: 13 Year
  Sex: Female
  Weight: 82.54 kg

DRUGS (4)
  1. TUSSIN [Suspect]
     Active Substance: GUAIFENESIN
     Indication: Oropharyngeal pain
     Dosage: 1 TEASPOON, PRN
     Route: 048
  2. TUSSIN [Suspect]
     Active Substance: GUAIFENESIN
     Indication: Cough
     Dosage: 1 TEASPOON, QD
     Route: 048
     Dates: start: 20211226, end: 20211229
  3. TUSSIN [Suspect]
     Active Substance: GUAIFENESIN
     Indication: Nasopharyngitis
     Dosage: 1 TEASPOON, SINGLE
     Route: 048
     Dates: start: 20220112, end: 20220112
  4. ALBUTEROL SULFATE [Concomitant]
     Active Substance: ALBUTEROL SULFATE
     Indication: COVID-19
     Dosage: UNKNOWN, UNKNOWN
     Route: 065
     Dates: start: 20211226, end: 20211229

REACTIONS (11)
  - Seizure like phenomena [Recovered/Resolved]
  - Tongue biting [Recovered/Resolved]
  - Musculoskeletal stiffness [Recovered/Resolved]
  - Psychomotor hyperactivity [Recovered/Resolved]
  - Loss of personal independence in daily activities [Recovered/Resolved]
  - Strabismus [Recovered/Resolved]
  - Inappropriate affect [Recovered/Resolved]
  - Insomnia [Not Recovered/Not Resolved]
  - Personality change [Recovering/Resolving]
  - Tremor [Recovering/Resolving]
  - Incorrect dose administered [Recovered/Resolved]

NARRATIVE: CASE EVENT DATE: 20211226
